FAERS Safety Report 8866550 (Version 1)
Quarter: 2012Q4

REPORT INFORMATION
  Report Type: 
  Country: US (occurrence: US)
  Receive Date: 20121025
  Receipt Date: 20121025
  Transmission Date: 20130627
  Serious: No
  Sender: FDA-Public Use
  Company Number: US-ASTRAZENECA-2012SE04361

PATIENT
  Sex: Male

DRUGS (4)
  1. METOPROLOL [Suspect]
     Route: 065
  2. CRESTOR [Suspect]
     Route: 048
  3. BRILINTA [Suspect]
     Route: 048
  4. ASPIRIN [Suspect]
     Route: 065

REACTIONS (1)
  - Epistaxis [Unknown]
